FAERS Safety Report 8278033-7 (Version None)
Quarter: 2012Q2

REPORT INFORMATION
  Report Type: 
  Country: None (occurrence: None)
  Receive Date: 20120412
  Receipt Date: 20120326
  Transmission Date: 20120825
  Serious: Yes (Other)
  Sender: FDA-Public Use
  Company Number: US-FRI-1000024568

PATIENT
  Age: 62 Year
  Sex: Female

DRUGS (1)
  1. THYROID TAB [Suspect]
     Indication: HYPOTHYROIDISM
     Dosage: 60 MG
     Route: 048
     Dates: start: 19810101, end: 20111001

REACTIONS (15)
  - ALOPECIA [None]
  - FATIGUE [None]
  - DYSPHONIA [None]
  - CHEST PAIN [None]
  - THYROID FUNCTION TEST ABNORMAL [None]
  - TRI-IODOTHYRONINE INCREASED [None]
  - DRY SKIN [None]
  - BLOOD THYROID STIMULATING HORMONE INCREASED [None]
  - HEART RATE INCREASED [None]
  - THYROXINE DECREASED [None]
  - DRUG INEFFECTIVE [None]
  - COGNITIVE DISORDER [None]
  - FEELING COLD [None]
  - DEPRESSION [None]
  - ASTHENIA [None]
